FAERS Safety Report 19605451 (Version 2)
Quarter: 2021Q3

REPORT INFORMATION
  Report Type: Spontaneous
  Country: US (occurrence: US)
  Receive Date: 20210723
  Receipt Date: 20210922
  Transmission Date: 20211014
  Serious: No
  Sender: FDA-Public Use
  Company Number: US-MYLANLABS-2021M1044933

PATIENT
  Age: 62 Year
  Sex: Female
  Weight: 68 kg

DRUGS (2)
  1. EPIPEN [Suspect]
     Active Substance: EPINEPHRINE
     Indication: ANAPHYLACTIC REACTION
     Dosage: UNK UNK, PRN
     Route: 030
  2. EPIPEN [Suspect]
     Active Substance: EPINEPHRINE
     Dosage: UNK UNK, PRN
     Route: 030

REACTIONS (2)
  - Product quality issue [None]
  - Liquid product physical issue [None]

NARRATIVE: CASE EVENT DATE: 20210720
